FAERS Safety Report 22596800 (Version 1)
Quarter: 2023Q2

REPORT INFORMATION
  Report Type: Spontaneous
  Country: MY (occurrence: MY)
  Receive Date: 20230613
  Receipt Date: 20230613
  Transmission Date: 20230721
  Serious: Yes (Other)
  Sender: FDA-Public Use
  Company Number: MY-BoehringerIngelheim-2023-BI-242656

PATIENT
  Age: 73 Year
  Sex: Female

DRUGS (1)
  1. DABIGATRAN [Suspect]
     Active Substance: DABIGATRAN
     Indication: Atrial fibrillation
     Route: 048

REACTIONS (5)
  - Acute kidney injury [Unknown]
  - Vomiting [Unknown]
  - Hypophagia [Unknown]
  - Decreased appetite [Unknown]
  - Blood creatinine increased [Recovering/Resolving]
